FAERS Safety Report 5905710-2 (Version None)
Quarter: 2008Q4

REPORT INFORMATION
  Report Type: 
  Country: None (occurrence: None)
  Receive Date: 20081001
  Receipt Date: 20081001
  Transmission Date: 20090506
  Serious: No
  Sender: FDA-Public Use
  Company Number: None

PATIENT
  Age: 61 Year
  Sex: Male
  Weight: 89.3 kg

DRUGS (3)
  1. RANOLAZINE [Suspect]
     Indication: ANGINA PECTORIS
     Dosage: 500 MG BID PO
     Route: 048
     Dates: start: 20080625, end: 20080626
  2. RANOLAZINE [Suspect]
     Indication: STENT PLACEMENT
     Dosage: 500 MG BID PO
     Route: 048
     Dates: start: 20080625, end: 20080626
  3. RANOLAZINE [Suspect]
     Indication: SURGERY
     Dosage: 500 MG BID PO
     Route: 048
     Dates: start: 20080625, end: 20080626

REACTIONS (1)
  - HEADACHE [None]
